FAERS Safety Report 9370219 (Version 2)
Quarter: 2013Q3

REPORT INFORMATION
  Report Type: Spontaneous
  Country: JP (occurrence: JP)
  Receive Date: 20130626
  Receipt Date: 20130703
  Transmission Date: 20140515
  Serious: No
  Sender: FDA-Public Use
  Company Number: JP-JNJFOC-20130610022

PATIENT
  Age: 8 Decade
  Sex: Female

DRUGS (1)
  1. DUROTEP MT [Suspect]
     Indication: CANCER PAIN
     Route: 062
     Dates: start: 20130611, end: 20130612

REACTIONS (2)
  - Application site pruritus [Recovered/Resolved]
  - Treatment noncompliance [Unknown]
